FAERS Safety Report 5156535-X (Version None)
Quarter: 2006Q4

REPORT INFORMATION
  Report Type: 
  Country: None (occurrence: None)
  Receive Date: 20061114
  Receipt Date: 20061102
  Transmission Date: 20070319
  Serious: Yes (Other)
  Sender: FDA-Public Use
  Company Number: 230231M06USA

PATIENT
  Age: 41 Year
  Sex: Female
  Weight: 97.7502 kg

DRUGS (7)
  1. REBIF [Suspect]
     Indication: MULTIPLE SCLEROSIS
     Dosage: 44 MCG, 3 IN 1 WEEKS, SUBCUTANEOUS
     Route: 058
     Dates: start: 20060301, end: 20060831
  2. LIPITOR [Concomitant]
  3. CLONIDINE [Concomitant]
  4. PROCARDIA [Concomitant]
  5. LISINOPRIL [Concomitant]
  6. VERAPAMIL ER [Concomitant]
  7. HYDROCHLOROTHIAZIDE [Concomitant]

REACTIONS (4)
  - ANAEMIA [None]
  - BLOOD PRESSURE INCREASED [None]
  - FOCAL GLOMERULOSCLEROSIS [None]
  - RENAL FAILURE ACUTE [None]
